FAERS Safety Report 8553024-7 (Version None)
Quarter: 2012Q3

REPORT INFORMATION
  Report Type: 
  Country: None (occurrence: None)
  Receive Date: 20120724
  Receipt Date: 20120724
  Transmission Date: 20120928
  Serious: Yes (Hospitalization, Disabling)
  Sender: FDA-Public Use
  Company Number: None

PATIENT
  Sex: Female
  Weight: 58.9676 kg

DRUGS (1)
  1. SAPHRIS [Suspect]
     Indication: BIPOLAR DISORDER
     Dosage: 5MG BID SUBLINGUAL BY MOUTH
     Route: 048
     Dates: start: 20110428, end: 20110504

REACTIONS (3)
  - CHEST PAIN [None]
  - SKIN DISORDER [None]
  - BRONCHITIS [None]
